FAERS Safety Report 14631108 (Version 1)
Quarter: 2018Q1

REPORT INFORMATION
  Report Type: Spontaneous
  Country: US (occurrence: US)
  Receive Date: 20180313
  Receipt Date: 20180313
  Transmission Date: 20180509
  Serious: No
  Sender: FDA-Public Use
  Company Number: US-TEVA-761678ACC

PATIENT
  Age: 15 Month
  Sex: Male

DRUGS (1)
  1. AMOXICILLIN. [Suspect]
     Active Substance: AMOXICILLIN
     Dates: start: 20170412, end: 20170415

REACTIONS (2)
  - Dermatitis diaper [Unknown]
  - Rash [Unknown]

NARRATIVE: CASE EVENT DATE: 20170414
